FAERS Safety Report 8050913-7 (Version None)
Quarter: 2012Q1

REPORT INFORMATION
  Report Type: 
  Country: None (occurrence: None)
  Receive Date: 20120117
  Receipt Date: 20120109
  Transmission Date: 20120608
  Serious: Yes (Other)
  Sender: FDA-Public Use
  Company Number: PHHY2012CA002675

PATIENT

DRUGS (1)
  1. RASILEZ [Suspect]

REACTIONS (1)
  - CEREBROVASCULAR ACCIDENT [None]
